FAERS Safety Report 9621695 (Version 1)
Quarter: 2013Q4

REPORT INFORMATION
  Report Type: Spontaneous
  Country: US (occurrence: US)
  Receive Date: 20131015
  Receipt Date: 20131015
  Transmission Date: 20140711
  Serious: No
  Sender: FDA-Public Use
  Company Number: US-PURDUE-USA-2012-0084799

PATIENT
  Age: 51 Year
  Sex: Female

DRUGS (2)
  1. BUTRANS [Suspect]
     Indication: BACK PAIN
     Dosage: 20 MCG/HR, UNK
     Route: 062
     Dates: start: 20120331
  2. OXYCODONE HCL CR TABLETS (SIMILAR TO NDA 22-272) [Suspect]
     Indication: BREAKTHROUGH PAIN
     Dosage: 5 MG, UNK
     Dates: start: 201108

REACTIONS (3)
  - Somnolence [Unknown]
  - Nausea [Unknown]
  - Vomiting [Unknown]
